FAERS Safety Report 7114360-4 (Version None)
Quarter: 2010Q4

REPORT INFORMATION
  Report Type: 
  Country: None (occurrence: None)
  Receive Date: 20101119
  Receipt Date: 20101029
  Transmission Date: 20110411
  Serious: Yes (Hospitalization)
  Sender: FDA-Public Use
  Company Number: PHHO2006US02410

PATIENT
  Sex: Male
  Weight: 10.2 kg

DRUGS (1)
  1. ELIDEL [Suspect]
     Indication: DERMATITIS ATOPIC
     Dosage: TWICE DAILY
     Route: 061
     Dates: start: 20050324

REACTIONS (9)
  - BACTERIAL INFECTION [None]
  - COUGH [None]
  - CROUP INFECTIOUS [None]
  - DEHYDRATION [None]
  - HYPOPHAGIA [None]
  - OTITIS MEDIA ACUTE [None]
  - PYREXIA [None]
  - RESPIRATORY SYNCYTIAL VIRUS BRONCHIOLITIS [None]
  - URINE OUTPUT DECREASED [None]
